FAERS Safety Report 5423991-9 (Version None)
Quarter: 2007Q3

REPORT INFORMATION
  Report Type: 
  Country: None (occurrence: None)
  Receive Date: 20070823
  Receipt Date: 20070822
  Transmission Date: 20080115
  Serious: Yes (Disabling)
  Sender: FDA-Public Use
  Company Number: US-ASTRAZENECA-2007UW18385

PATIENT
  Age: 58 Year
  Sex: Female
  Weight: 70.5 kg

DRUGS (5)
  1. CRESTOR [Suspect]
     Indication: HYPERCHOLESTEROLAEMIA
     Route: 048
     Dates: start: 20070714
  2. VICODIN [Concomitant]
     Route: 048
  3. VALIUM [Concomitant]
     Indication: ANXIETY
     Route: 048
  4. DURAGESIC-100 [Concomitant]
     Route: 062
     Dates: start: 20060816
  5. BENTYL [Concomitant]
     Indication: IRRITABLE BOWEL SYNDROME
     Route: 048

REACTIONS (4)
  - ABDOMINAL PAIN [None]
  - ARTHRALGIA [None]
  - MYALGIA [None]
  - VISION BLURRED [None]
